FAERS Safety Report 15433095 (Version 1)
Quarter: 2018Q3

REPORT INFORMATION
  Report Type: Spontaneous
  Country: US (occurrence: US)
  Receive Date: 20180927
  Receipt Date: 20180927
  Transmission Date: 20181010
  Serious: No
  Sender: FDA-Public Use
  Company Number: US-NOVEN PHARMACEUTICALS, INC.-US2018000022

PATIENT

DRUGS (1)
  1. COMBIPATCH [Suspect]
     Active Substance: ESTRADIOL\NORETHINDRONE ACETATE
     Indication: PRODUCT USED FOR UNKNOWN INDICATION
     Dosage: 0.05/0.25 MG, UNK
     Route: 062

REACTIONS (4)
  - Vaginal haemorrhage [Unknown]
  - Product adhesion issue [Not Recovered/Not Resolved]
  - Application site erythema [Unknown]
  - Drug ineffective [Unknown]
